FAERS Safety Report 5256179-5 (Version None)
Quarter: 2007Q1

REPORT INFORMATION
  Report Type: 
  Country: None (occurrence: None)
  Receive Date: 20070306
  Receipt Date: 20070228
  Transmission Date: 20070707
  Serious: Yes (Disabling)
  Sender: FDA-Public Use
  Company Number: 2006UW28426

PATIENT
  Age: 64 Year
  Sex: Female

DRUGS (2)
  1. ARIMIDEX [Suspect]
     Indication: BREAST CANCER FEMALE
     Route: 048
     Dates: start: 20060901, end: 20061001
  2. CODEINE CONTIN [Concomitant]
     Indication: PAIN
     Route: 048
     Dates: start: 20060901

REACTIONS (1)
  - VERTIGO [None]
